FAERS Safety Report 4672360-8 (Version None)
Quarter: 2005Q2

REPORT INFORMATION
  Report Type: 
  Country: None (occurrence: None)
  Receive Date: 20050520
  Receipt Date: 20050511
  Transmission Date: 20051028
  Serious: Yes (Life-Threatening, Hospitalization, Other)
  Sender: FDA-Public Use
  Company Number: 2004-11-0404

PATIENT
  Age: 24 Year
  Sex: Female

DRUGS (6)
  1. TEMODAL [Suspect]
     Indication: OLIGODENDROGLIOMA
     Dosage: 200 MGQDX5D ORAL
     Route: 048
     Dates: start: 20040917, end: 20040921
  2. TEMODAL [Suspect]
     Indication: OLIGODENDROGLIOMA
     Dosage: 200 MGQDX5D ORAL
     Route: 048
     Dates: start: 20041117, end: 20041121
  3. TEMODAL [Suspect]
     Indication: OLIGODENDROGLIOMA
     Dosage: 200 MGQDX5D ORAL
     Route: 048
     Dates: start: 20050330, end: 20050403
  4. TEMODAL [Suspect]
     Indication: OLIGODENDROGLIOMA
     Dosage: 200 MGQDX5D ORAL
     Route: 048
     Dates: start: 20040917
  5. TEMODAL [Suspect]
     Indication: OLIGODENDROGLIOMA
     Dosage: 200 MGQDX5D ORAL
     Route: 048
     Dates: start: 20050426
  6. RADIATION THERAPY [Concomitant]

REACTIONS (10)
  - CEREBRAL HAEMORRHAGE [None]
  - CONTUSION [None]
  - CONVULSION [None]
  - HAEMORRHAGE [None]
  - HYPOAESTHESIA [None]
  - MALIGNANT NEOPLASM PROGRESSION [None]
  - NEOPLASM PROGRESSION [None]
  - OLIGODENDROGLIOMA [None]
  - PARAESTHESIA [None]
  - TUMOUR HAEMORRHAGE [None]
